FAERS Safety Report 9648854 (Version 2)
Quarter: 2014Q1

REPORT INFORMATION
  Report Type: Spontaneous
  Country: US (occurrence: None)
  Receive Date: 20131018
  Receipt Date: 20140122
  Transmission Date: 20141002
  Serious: No
  Sender: FDA-Public Use
  Company Number: AEGR000139

PATIENT
  Age: 73 Year
  Sex: Male
  Weight: 68.2 kg

DRUGS (7)
  1. JUXTAPID [Suspect]
     Indication: TYPE IIA HYPERLIPIDAEMIA
     Dosage: (Q HS)
     Route: 048
     Dates: start: 20130910, end: 20131009
  2. FISH OIL (FISH OIL) [Concomitant]
  3. VITAMINS [Concomitant]
  4. XANAX (ALPRAZOLAM) [Concomitant]
  5. VITAMIN B12 (CYANOCOBALAMIN) [Concomitant]
  6. VITAMIN D (ERGOCALCIFEROL) [Concomitant]
  7. VITAMIN C (ASCORBIC ACID) [Concomitant]

REACTIONS (4)
  - Asthenia [None]
  - Diarrhoea [None]
  - Weight decreased [None]
  - Fatigue [None]
